FAERS Safety Report 7562104-4 (Version None)
Quarter: 2011Q2

REPORT INFORMATION
  Report Type: 
  Country: None (occurrence: None)
  Receive Date: 20110622
  Receipt Date: 20110614
  Transmission Date: 20111010
  Serious: Yes (Hospitalization)
  Sender: FDA-Public Use
  Company Number: US-BIOGENIDEC-2010BI033434

PATIENT
  Age: 51 Year
  Sex: Male

DRUGS (1)
  1. AVONEX [Suspect]
     Indication: MULTIPLE SCLEROSIS
     Route: 030
     Dates: start: 20100730, end: 20100901

REACTIONS (4)
  - INTERVERTEBRAL DISC COMPRESSION [None]
  - HYPOAESTHESIA [None]
  - BURNING SENSATION [None]
  - SCIATICA [None]
